FAERS Safety Report 13956462 (Version 5)
Quarter: 2020Q2

REPORT INFORMATION
  Report Type: Spontaneous
  Country: US (occurrence: US)
  Receive Date: 20170911
  Receipt Date: 20200615
  Transmission Date: 20200713
  Serious: Yes (Other)
  Sender: FDA-Public Use
  Company Number: US-PFIZER INC-2017385363

PATIENT
  Age: 65 Year
  Sex: Male

DRUGS (6)
  1. MORPHINE SULFATE. [Suspect]
     Active Substance: MORPHINE SULFATE
     Dosage: 20% DECREASE MONTHLY
     Route: 037
     Dates: end: 20121129
  2. MORPHINE SULFATE. [Suspect]
     Active Substance: MORPHINE SULFATE
     Indication: SPINAL PAIN
     Dosage: 3.373 MG, DAILY
     Route: 037
     Dates: start: 2006
  3. OXYCODONE [Concomitant]
     Active Substance: OXYCODONE
     Indication: SPINAL PAIN
     Dosage: UNK
     Route: 048
     Dates: start: 2006
  4. HYDROMORPHONE [Concomitant]
     Active Substance: HYDROMORPHONE
     Indication: SPINAL PAIN
     Dosage: UNK
     Route: 048
     Dates: start: 2006
  5. BUPIVICAINE [Concomitant]
     Active Substance: BUPIVACAINE
     Indication: SPINAL PAIN
     Dosage: 0.8432 MG, DAILY
     Route: 037
     Dates: start: 2006
  6. HYDROCODONE [Concomitant]
     Active Substance: HYDROCODONE
     Indication: SPINAL PAIN
     Dosage: UNK
     Route: 048
     Dates: start: 2006

REACTIONS (3)
  - Dementia [Recovered/Resolved]
  - Drug tolerance [Recovered/Resolved]
  - Drug dependence [Recovered/Resolved]
